FAERS Safety Report 20571202 (Version 4)
Quarter: 2023Q1

REPORT INFORMATION
  Report Type: Spontaneous
  Country: DE (occurrence: DE)
  Receive Date: 20220309
  Receipt Date: 20230128
  Transmission Date: 20230417
  Serious: Yes (Life-Threatening, Hospitalization, Other)
  Sender: FDA-Public Use
  Company Number: None

PATIENT
  Age: 81 Year
  Sex: Male
  Weight: 51 kg

DRUGS (6)
  1. METFORMIN [Suspect]
     Active Substance: METFORMIN HYDROCHLORIDE
     Indication: Diabetes mellitus
     Dosage: 850 MG
     Route: 048
     Dates: end: 20220113
  2. METFORMIN [Suspect]
     Active Substance: METFORMIN HYDROCHLORIDE
     Indication: Type 2 diabetes mellitus
  3. PANTOPRAZOLE SODIUM [Concomitant]
     Active Substance: PANTOPRAZOLE SODIUM
     Indication: Gastritis erosive
     Dosage: 20 MG
     Route: 048
  4. METOPROLOL [Concomitant]
     Active Substance: METOPROLOL
     Indication: Hypertension
     Dosage: 2 DOSAGE FORM (47.5 MG)
     Route: 048
  5. LISINOPRIL [Concomitant]
     Active Substance: LISINOPRIL
     Indication: Hypertension
     Dosage: 10 MG
     Route: 048
  6. AMLODIPINE [Concomitant]
     Active Substance: AMLODIPINE BESYLATE
     Indication: Hypertension
     Dosage: 5 MG
     Route: 048

REACTIONS (36)
  - Aphasia [Recovered/Resolved]
  - Magnetic resonance imaging abnormal [Recovered/Resolved]
  - Hemiparesis [Recovered/Resolved]
  - Neurological symptom [Recovered/Resolved]
  - Pleocytosis [Recovered/Resolved]
  - Hemiplegia [Recovered/Resolved]
  - Lactic acidosis [Recovered/Resolved]
  - Coma [Recovering/Resolving]
  - Loss of consciousness [Recovering/Resolving]
  - Miosis [Recovering/Resolving]
  - Blood loss anaemia [Unknown]
  - Transitional cell carcinoma [Unknown]
  - Seizure [Unknown]
  - Quadriplegia [Unknown]
  - Cachexia [Unknown]
  - Blood pH decreased [Unknown]
  - Tricuspid valve incompetence [Unknown]
  - Acute myocardial infarction [Unknown]
  - Aortic arteriosclerosis [Unknown]
  - Macroangiopathy [Unknown]
  - Blood creatinine increased [Unknown]
  - Hyperkalaemia [Unknown]
  - Dehydration [Unknown]
  - Dysplasia [Unknown]
  - Aortic elongation [Unknown]
  - Sinusitis [Unknown]
  - Oedema mucosal [Unknown]
  - Hernia [Unknown]
  - Acquired oesophageal web [Unknown]
  - Gastric mucosa erythema [Unknown]
  - Mitral valve sclerosis [Unknown]
  - Large intestine polyp [Unknown]
  - Dermatitis allergic [Unknown]
  - Abdominal pain [Unknown]
  - Diarrhoea [Unknown]
  - Transaminases increased [Unknown]

NARRATIVE: CASE EVENT DATE: 20220101
